FAERS Safety Report 7997836-7 (Version None)
Quarter: 2011Q4

REPORT INFORMATION
  Report Type: 
  Country: None (occurrence: None)
  Receive Date: 20111221
  Receipt Date: 20111208
  Transmission Date: 20120403
  Serious: Yes (Other)
  Sender: FDA-Public Use
  Company Number: PHEH2011US011329

PATIENT
  Sex: Female

DRUGS (2)
  1. DIOVAN HCT [Suspect]
     Dosage: 1 DF(320/25 MG) QD
  2. JANUMET [Suspect]
     Dosage: 50/1000 MG TWICE A DAY.

REACTIONS (8)
  - TYPE 2 DIABETES MELLITUS [None]
  - RENAL FAILURE CHRONIC [None]
  - HYPERTENSIVE HEART DISEASE [None]
  - CORONARY ARTERY DISEASE [None]
  - OSTEOARTHRITIS [None]
  - DIABETIC RETINOPATHY [None]
  - CEREBROVASCULAR ACCIDENT [None]
  - ASTHMA [None]
